FAERS Safety Report 11977818 (Version 1)
Quarter: 2016Q1

REPORT INFORMATION
  Report Type: Spontaneous
  Country: IT (occurrence: IT)
  Receive Date: 20160129
  Receipt Date: 20160129
  Transmission Date: 20160526
  Serious: Yes (Hospitalization)
  Sender: FDA-Public Use
  Company Number: IT-009507513-1601ITA009537

PATIENT
  Age: 78 Year
  Sex: Female
  Weight: 76 kg

DRUGS (10)
  1. LANTUS [Suspect]
     Active Substance: INSULIN GLARGINE
     Dosage: 13 IU, QD AT NIGHT
     Route: 058
     Dates: start: 20130210
  2. BIFRIZIDE [Concomitant]
     Active Substance: HYDROCHLOROTHIAZIDE
     Dosage: 1 DF, UNK
     Route: 048
  3. LANTUS [Suspect]
     Active Substance: INSULIN GLARGINE
     Indication: TYPE 2 DIABETES MELLITUS
     Dosage: STRENGTH: 100 U/ML, TOTAL DAILY DOSE 14 IU (LESS THAN 100)
     Route: 058
     Dates: start: 20130101, end: 20130209
  4. GLUCOBAY [Suspect]
     Active Substance: ACARBOSE
     Indication: TYPE 2 DIABETES MELLITUS
     Dosage: 25 MG, QD
     Route: 048
     Dates: start: 20130101
  5. JANUVIA [Suspect]
     Active Substance: SITAGLIPTIN PHOSPHATE
     Indication: TYPE 2 DIABETES MELLITUS
     Dosage: 100 MG, DAILY
     Route: 048
     Dates: start: 20130101
  6. CONCOR [Concomitant]
     Active Substance: BISOPROLOL FUMARATE
     Route: 048
  7. OMEPRAZOLE. [Concomitant]
     Active Substance: OMEPRAZOLE
  8. HUMALOG [Suspect]
     Active Substance: INSULIN LISPRO
     Indication: TYPE 2 DIABETES MELLITUS
     Dosage: STRENGTH: 100 U/ML, 32 IU, QD
     Route: 058
     Dates: start: 20130101, end: 20130209
  9. HUMALOG [Suspect]
     Active Substance: INSULIN LISPRO
     Dosage: 18 IU, QD DURING MEAL
     Route: 058
     Dates: start: 20130210
  10. GLUCOPHAGE [Suspect]
     Active Substance: METFORMIN HYDROCHLORIDE
     Indication: TYPE 2 DIABETES MELLITUS
     Dosage: 500 MG, QD
     Route: 048
     Dates: start: 20130101, end: 20130209

REACTIONS (1)
  - Shock hypoglycaemic [Recovered/Resolved]

NARRATIVE: CASE EVENT DATE: 20130209
